FAERS Safety Report 9271282 (Version 2)
Quarter: 2013Q2

REPORT INFORMATION
  Report Type: Spontaneous
  Country: DE (occurrence: DE)
  Receive Date: 20130506
  Receipt Date: 20130613
  Transmission Date: 20140414
  Serious: Yes (Hospitalization, Other)
  Sender: FDA-Public Use
  Company Number: DE-JNJFOC-20130500009

PATIENT
  Age: 82 Year
  Sex: Male
  Weight: 74 kg

DRUGS (4)
  1. XARELTO [Suspect]
     Indication: ATRIAL FIBRILLATION
     Route: 048
     Dates: start: 201212
  2. BISOPROLOL [Concomitant]
     Indication: ATRIAL FIBRILLATION
     Route: 065
     Dates: start: 201302
  3. HCT [Concomitant]
     Indication: HYPERTENSION
     Route: 065
     Dates: start: 201301
  4. OMEP [Concomitant]
     Route: 065
     Dates: start: 201212

REACTIONS (3)
  - Retinal vein thrombosis [Not Recovered/Not Resolved]
  - Visual impairment [Unknown]
  - Age-related macular degeneration [Not Recovered/Not Resolved]
